FAERS Safety Report 9186174 (Version 1)
Quarter: 2013Q1

REPORT INFORMATION
  Report Type: Spontaneous
  Country: US (occurrence: US)
  Receive Date: 20130325
  Receipt Date: 20130325
  Transmission Date: 20140127
  Serious: Yes (Other)
  Sender: FDA-Public Use
  Company Number: US-ABBOTT-13P-163-1062246-00

PATIENT
  Sex: Female
  Weight: 49.94 kg

DRUGS (3)
  1. SYNTHROID [Suspect]
     Indication: HYPOTHYROIDISM
     Route: 048
  2. SYNTHROID [Suspect]
     Indication: HYPOTHYROIDISM
  3. VASOTEC [Concomitant]
     Indication: HYPERTENSION

REACTIONS (6)
  - Uterine cancer [Recovered/Resolved]
  - Alopecia [Not Recovered/Not Resolved]
  - Feeling jittery [Not Recovered/Not Resolved]
  - Malaise [Not Recovered/Not Resolved]
  - Product quality issue [Unknown]
  - Product size issue [Unknown]
